FAERS Safety Report 19854674 (Version 1)
Quarter: 2021Q3

REPORT INFORMATION
  Report Type: Spontaneous
  Country: US (occurrence: US)
  Receive Date: 20210918
  Receipt Date: 20210918
  Transmission Date: 20211014
  Serious: Yes (Other)
  Sender: FDA-Public Use
  Company Number: None

PATIENT
  Age: 63 Year
  Sex: Female
  Weight: 85.95 kg

DRUGS (6)
  1. REGEN?COV [Suspect]
     Active Substance: CASIRIVIMAB\IMDEVIMAB
     Indication: COVID-19
     Dosage: ?          QUANTITY:1 INFUSION;OTHER FREQUENCY:ONE TIME INFUSION;?
     Route: 042
     Dates: start: 20210827, end: 20210827
  2. LOW DOSE ASPIRIN [Concomitant]
     Active Substance: ASPIRIN
  3. COENZYME Q10 [Concomitant]
     Active Substance: DIETARY SUPPLEMENT\UBIDECARENONE
  4. MULTI VITAMIN [Concomitant]
     Active Substance: VITAMINS
  5. PRO SIGHT VIT [Concomitant]
  6. VIT D [Concomitant]
     Active Substance: VITAMIN D NOS

REACTIONS (1)
  - Neuropathy peripheral [None]

NARRATIVE: CASE EVENT DATE: 20210905
